FAERS Safety Report 16968427 (Version 3)
Quarter: 2020Q1

REPORT INFORMATION
  Report Type: Spontaneous
  Country: FR (occurrence: FR)
  Receive Date: 20191029
  Receipt Date: 20200108
  Transmission Date: 20200409
  Serious: Yes (Hospitalization, Other)
  Sender: FDA-Public Use
  Company Number: FR-AUROBINDO-AUR-APL-2019-061496

PATIENT
  Age: 3 Decade
  Sex: Female

DRUGS (19)
  1. CALCIUM CARBONATE. [Concomitant]
     Active Substance: CALCIUM CARBONATE
     Indication: HYPERPARATHYROIDISM SECONDARY
     Dosage: 1.5 GRAM, ONCE A DAY
     Route: 065
  2. CALCIUM CARBONATE. [Concomitant]
     Active Substance: CALCIUM CARBONATE
     Dosage: 2 GRAM, ONCE A DAY
     Route: 065
  3. CALCIUM CARBONATE. [Concomitant]
     Active Substance: CALCIUM CARBONATE
     Dosage: 12 GRAM, ONCE A DAY
     Route: 042
  4. CINACALCET. [Suspect]
     Active Substance: CINACALCET
     Indication: HYPERPARATHYROIDISM SECONDARY
     Dosage: 30 MILLIGRAM, ONCE A DAY
     Route: 065
     Dates: start: 20060307
  5. ALFACALCIDOL [Concomitant]
     Active Substance: ALFACALCIDOL
     Indication: HYPERPARATHYROIDISM SECONDARY
     Dosage: 4 MICROGRAM, ONCE A DAY
  6. SEVELAMER [Concomitant]
     Active Substance: SEVELAMER
     Dosage: 4800 MILLIGRAM, ONCE A DAY
     Route: 065
  7. CINACALCET. [Suspect]
     Active Substance: CINACALCET
     Dosage: 150 MILLIGRAM, ONCE A DAY
     Route: 065
     Dates: start: 2007, end: 200705
  8. SEVELAMER [Concomitant]
     Active Substance: SEVELAMER
     Dosage: 3200 MILLIGRAM, ONCE A DAY
     Route: 065
  9. VITAMIN D [Concomitant]
     Active Substance: VITAMIN D NOS
     Indication: PRODUCT USED FOR UNKNOWN INDICATION
     Dosage: UNK
     Route: 065
  10. CINACALCET. [Suspect]
     Active Substance: CINACALCET
     Dosage: 60 MILLIGRAM, ONCE A DAY
     Route: 065
     Dates: start: 20060610
  11. CINACALCET. [Suspect]
     Active Substance: CINACALCET
     Dosage: 120 MILLIGRAM, ONCE A DAY
     Route: 065
     Dates: start: 20061206
  12. CALCIUM CARBONATE. [Concomitant]
     Active Substance: CALCIUM CARBONATE
     Dosage: 4.5 GRAM, ONCE A DAY
     Route: 065
  13. CINACALCET. [Suspect]
     Active Substance: CINACALCET
     Dosage: 90 MILLIGRAM, ONCE A DAY
     Dates: start: 20060915
  14. ALFACALCIDOL [Concomitant]
     Active Substance: ALFACALCIDOL
     Dosage: 2 MICROGRAM, ONCE A DAY
     Route: 065
  15. CINACALCET. [Suspect]
     Active Substance: CINACALCET
     Dosage: 150 MILLIGRAM, ONCE A DAY
     Route: 065
     Dates: start: 20070524
  16. ALFACALCIDOL [Concomitant]
     Active Substance: ALFACALCIDOL
     Dosage: 1 MICROGRAM, ONCE A DAY
     Route: 065
  17. ALFACALCIDOL [Concomitant]
     Active Substance: ALFACALCIDOL
     Dosage: 6 MICROGRAM, ONCE A DAY
     Route: 065
  18. SEVELAMER [Concomitant]
     Active Substance: SEVELAMER
     Indication: HYPERPARATHYROIDISM SECONDARY
     Dosage: 2400 MILLIGRAM, ONCE A DAY
     Route: 065
  19. SEVELAMER [Concomitant]
     Active Substance: SEVELAMER
     Dosage: 7200 MILLIGRAM, ONCE A DAY
     Route: 065

REACTIONS (4)
  - Paradoxical drug reaction [Recovered/Resolved]
  - Oncocytoma [Recovered/Resolved]
  - Blood parathyroid hormone increased [Recovered/Resolved]
  - Maternal exposure during pregnancy [Unknown]
